FAERS Safety Report 9584715 (Version 1)
Quarter: 2013Q4

REPORT INFORMATION
  Report Type: Spontaneous
  Country: US (occurrence: US)
  Receive Date: 20131002
  Receipt Date: 20131002
  Transmission Date: 20140711
  Serious: No
  Sender: FDA-Public Use
  Company Number: US-AMGEN-USASP2013054937

PATIENT
  Age: 23 Year
  Sex: Male

DRUGS (2)
  1. ENBREL [Suspect]
     Indication: RHEUMATOID ARTHRITIS
     Dosage: 50 MG, QWK
     Route: 058
     Dates: start: 201307
  2. PREDNISONE [Concomitant]
     Dosage: 15 MG, UNK
     Route: 065

REACTIONS (2)
  - Rheumatoid arthritis [Unknown]
  - Local swelling [Recovering/Resolving]
